FAERS Safety Report 8808718 (Version 2)
Quarter: 2012Q4

REPORT INFORMATION
  Report Type: 
  Country: NL (occurrence: NL)
  Receive Date: 20120926
  Receipt Date: 20121101
  Transmission Date: 20130627
  Serious: Yes (Disabling, Other)
  Sender: FDA-Public Use
  Company Number: NL-GE HEALTHCARE MEDICAL DIAGNOSTICS-VISP-NO-1209S-0392

PATIENT
  Age: 69 Year
  Sex: Female
  Weight: 80 kg

DRUGS (7)
  1. VISIPAQUE [Suspect]
     Indication: PRODUCT USED FOR UNKNOWN INDICATION
     Route: 013
     Dates: start: 20120911, end: 20120911
  2. HEPARIN [Concomitant]
  3. CITANEST [Concomitant]
  4. ASCAL [Concomitant]
  5. PLAVIX [Concomitant]
  6. PERINDOPRIL [Concomitant]
  7. PANTOPRAZOL [Concomitant]

REACTIONS (7)
  - Visual acuity reduced [Unknown]
  - Diplopia [Unknown]
  - Vision blurred [Unknown]
  - Hyperventilation [Unknown]
  - Headache [Unknown]
  - Nausea [Unknown]
  - Vomiting [Unknown]
